FAERS Safety Report 14872349 (Version 2)
Quarter: 2018Q2

REPORT INFORMATION
  Report Type: Spontaneous
  Country: BG (occurrence: BG)
  Receive Date: 20180510
  Receipt Date: 20180515
  Transmission Date: 20180711
  Serious: Yes (Disabling)
  Sender: FDA-Public Use
  Company Number: BG-ROCHE-2118086

PATIENT
  Age: 61 Year
  Sex: Female
  Weight: 50 kg

DRUGS (3)
  1. MEDROL [Concomitant]
     Active Substance: METHYLPREDNISOLONE
     Indication: RHEUMATOID ARTHRITIS
     Route: 048
     Dates: start: 1995
  2. METHOTREXATE. [Concomitant]
     Active Substance: METHOTREXATE
     Indication: RHEUMATOID ARTHRITIS
     Route: 048
     Dates: start: 1995
  3. ROACTEMRA [Suspect]
     Active Substance: TOCILIZUMAB
     Indication: RHEUMATOID ARTHRITIS
     Dosage: LAST 3 MOST RECENT DOSES PRIOR TO EVENT ONSET: JUNE, JULY AND AUGUST OF UNSPECIFIED YEAR.
     Route: 058
     Dates: start: 201312, end: 201712

REACTIONS (1)
  - Squamous cell carcinoma of the oral cavity [Recovered/Resolved with Sequelae]

NARRATIVE: CASE EVENT DATE: 201704
